FAERS Safety Report 4601438-X (Version None)
Quarter: 2005Q1

REPORT INFORMATION
  Report Type: 
  Country: None (occurrence: None)
  Receive Date: 20050308
  Receipt Date: 20050228
  Transmission Date: 20050727
  Serious: Yes (Death)
  Sender: FDA-Public Use
  Company Number: US-GLAXOSMITHKLINE-A0547457A

PATIENT
  Age: 82 Year
  Sex: Male

DRUGS (2)
  1. TUMS [Suspect]
     Route: 048
  2. TUMS E-X TABLETS, SUGAR FREE ORANGE [Suspect]
     Route: 048

REACTIONS (2)
  - DEATH [None]
  - DIABETES MELLITUS [None]
